FAERS Safety Report 21746150 (Version 1)
Quarter: 2022Q4

REPORT INFORMATION
  Report Type: Spontaneous
  Country: US (occurrence: None)
  Receive Date: 20221216
  Receipt Date: 20221216
  Transmission Date: 20230112
  Serious: Yes (Other)
  Sender: FDA-Public Use
  Company Number: None

PATIENT
  Sex: Male

DRUGS (6)
  1. LORBRENA [Suspect]
     Active Substance: LORLATINIB
     Indication: Lung carcinoma cell type unspecified stage 0
     Dosage: 100 MG ORAL??TAKE 1 TABLET BY MOUTH ONCE DAILY. MAY TAKE WITH OR WITHOUT FOOD?
     Route: 048
     Dates: start: 20221109
  2. CALCIUM 500 TAB/VIT D3 [Concomitant]
  3. GLUCO/CHRONDR CAP 1500 COM [Concomitant]
  4. MULTIVITAMIN TAB MEN 50+ [Concomitant]
  5. TURMERIC TAB [Concomitant]
  6. VITAMIN D3 CAP [Concomitant]

REACTIONS (3)
  - Decreased appetite [None]
  - Insomnia [None]
  - Energy increased [None]
